FAERS Safety Report 25981401 (Version 2)
Quarter: 2025Q4

REPORT INFORMATION
  Report Type: Spontaneous
  Country: EU (occurrence: EU)
  Receive Date: 20251030
  Receipt Date: 20251111
  Transmission Date: 20260117
  Serious: Yes (Death, Other)
  Sender: EAGLE
  Company Number: EU-EAGLE PHARMACEUTICALS, INC.-LT-2025EAG000128

PATIENT

DRUGS (3)
  1. REMIMAZOLAM [Suspect]
     Active Substance: REMIMAZOLAM
     Indication: General anaesthesia
     Dosage: 5 MILLIGRAM
     Route: 042
     Dates: start: 20250627, end: 20250627
  2. REMIMAZOLAM [Suspect]
     Active Substance: REMIMAZOLAM
     Dosage: 2 MILLIGRAM
     Route: 042
     Dates: start: 20250627, end: 20250627
  3. FENTANYL [Suspect]
     Active Substance: FENTANYL
     Indication: General anaesthesia
     Dosage: 0.025 MILLIGRAM
     Route: 042
     Dates: start: 20250627, end: 20250627

REACTIONS (4)
  - Cardiac arrest [Fatal]
  - Ventricular fibrillation [Fatal]
  - Bradycardia [Fatal]
  - Respiratory failure [Unknown]

NARRATIVE: CASE EVENT DATE: 20250627
